FAERS Safety Report 9512086 (Version 1)
Quarter: 2013Q3

REPORT INFORMATION
  Report Type: Spontaneous
  Country: JP (occurrence: JP)
  Receive Date: 20130910
  Receipt Date: 20130910
  Transmission Date: 20140515
  Serious: Yes (Other)
  Sender: FDA-Public Use
  Company Number: JP-MYLANLABS-2013S1019484

PATIENT
  Age: 3 Year
  Sex: Male

DRUGS (5)
  1. CISPLATIN [Suspect]
     Indication: HEPATOBLASTOMA
     Dosage: 80 MG/M2 BI-WEEKLY
     Route: 065
  2. IRINOTECAN [Suspect]
     Indication: HEPATOBLASTOMA
     Dosage: 100 MG/M2
     Route: 065
  3. ETOPOSIDE [Suspect]
     Indication: HEPATOBLASTOMA
     Dosage: 100 MG/M2
     Route: 065
  4. CARBOPLATIN [Concomitant]
     Indication: HEPATOBLASTOMA
     Dosage: 120 MG/M2 4 TIMES PRIOR TO IRINOTECAN, CISPLATIN; THEN 2.6 MG/KG FOR 3D AFTER DOSE REDUCTION
     Route: 065
  5. CARBOPLATIN [Concomitant]
     Indication: HEPATOBLASTOMA
     Dosage: 2.6 MG/KG FOR 3 DAYS
     Route: 065

REACTIONS (4)
  - Nephropathy [Unknown]
  - Bone marrow failure [Unknown]
  - Sepsis [Unknown]
  - Diarrhoea [Unknown]
